FAERS Safety Report 21132010 (Version 2)
Quarter: 2022Q3

REPORT INFORMATION
  Report Type: Report from Study
  Country: DE (occurrence: DE)
  Receive Date: 20220726
  Receipt Date: 20220808
  Transmission Date: 20221027
  Serious: Yes (Hospitalization)
  Sender: FDA-Public Use
  Company Number: DE-MYLANLABS-2022M1080006

PATIENT
  Sex: Female

DRUGS (11)
  1. METHOTREXATE [Suspect]
     Active Substance: METHOTREXATE
     Indication: Rheumatoid arthritis
     Dosage: 22.5 MILLIGRAM
     Route: 065
     Dates: start: 20191112
  2. METHOTREXATE [Suspect]
     Active Substance: METHOTREXATE
     Dosage: 22.5 MILLIGRAM
     Route: 065
     Dates: start: 20200310
  3. METHOTREXATE [Suspect]
     Active Substance: METHOTREXATE
     Dosage: 22.5 MILLIGRAM
     Route: 065
     Dates: start: 20200515
  4. METHOTREXATE [Suspect]
     Active Substance: METHOTREXATE
     Dosage: 15 MILLIGRAM
     Route: 065
     Dates: start: 20201110
  5. METHOTREXATE [Suspect]
     Active Substance: METHOTREXATE
     Dosage: 15 MILLIGRAM
     Route: 065
     Dates: start: 20210506
  6. LEFLUNOMIDE [Suspect]
     Active Substance: LEFLUNOMIDE
     Indication: Rheumatoid arthritis
     Dosage: 15 MILLIGRAM
     Route: 065
     Dates: start: 20191112
  7. LEFLUNOMIDE [Suspect]
     Active Substance: LEFLUNOMIDE
     Dosage: 15 MILLIGRAM
     Route: 065
     Dates: start: 20200310
  8. LEFLUNOMIDE [Suspect]
     Active Substance: LEFLUNOMIDE
     Dosage: 15 MILLIGRAM
     Route: 065
     Dates: start: 20200515
  9. LEFLUNOMIDE [Suspect]
     Active Substance: LEFLUNOMIDE
     Dosage: 15 MILLIGRAM
     Route: 065
     Dates: start: 20201110
  10. LEFLUNOMIDE [Suspect]
     Active Substance: LEFLUNOMIDE
     Dosage: 15 MILLIGRAM
     Route: 065
     Dates: start: 20210506
  11. LEFLUNOMIDE [Suspect]
     Active Substance: LEFLUNOMIDE
     Dosage: 15 MILLIGRAM
     Route: 065
     Dates: start: 20211124

REACTIONS (2)
  - Myocardial infarction [Recovered/Resolved]
  - Coronary artery disease [Unknown]

NARRATIVE: CASE EVENT DATE: 20201208
